FAERS Safety Report 14118732 (Version 1)
Quarter: 2017Q4

REPORT INFORMATION
  Report Type: Spontaneous
  Country: US (occurrence: US)
  Receive Date: 20171023
  Receipt Date: 20171023
  Transmission Date: 20180321
  Serious: Yes (Death)
  Sender: FDA-Public Use
  Company Number: US-THE RITEDOSE CORPORATION-2017RIT000252

PATIENT

DRUGS (1)
  1. ALBUTEROL SULFATE INHALATION SOLUTION [Suspect]
     Active Substance: ALBUTEROL SULFATE
     Indication: DYSPNOEA
     Dosage: UNK UNK, ONCE
     Route: 055
     Dates: start: 201608, end: 201608

REACTIONS (1)
  - Myocardial infarction [Fatal]

NARRATIVE: CASE EVENT DATE: 20160823
